FAERS Safety Report 14604125 (Version 5)
Quarter: 2018Q3

REPORT INFORMATION
  Report Type: Spontaneous
  Country: US (occurrence: US)
  Receive Date: 20180306
  Receipt Date: 20180929
  Transmission Date: 20181010
  Serious: Yes (Life-Threatening, Hospitalization, Other)
  Sender: FDA-Public Use
  Company Number: US-AUROBINDO-AUR-APL-2018-010544

PATIENT
  Age: 17 Year
  Sex: Male

DRUGS (2)
  1. METFORMIN TABLET [Suspect]
     Active Substance: METFORMIN HYDROCHLORIDE
     Dosage: 0.173 G/KG BODY WEIGHT
     Route: 048
  2. METFORMIN TABLET [Suspect]
     Active Substance: METFORMIN HYDROCHLORIDE
     Indication: SUICIDE ATTEMPT
     Dosage: 10000 MILLIGRAM IN TOTAL (20 TABLETS)
     Route: 065

REACTIONS (13)
  - Intentional overdose [Unknown]
  - Vomiting [Recovered/Resolved]
  - Cardiomyopathy [Recovered/Resolved]
  - Abnormal behaviour [Recovered/Resolved]
  - Metabolic acidosis [Unknown]
  - Somnolence [Recovered/Resolved]
  - Renal impairment [Unknown]
  - Acute kidney injury [Recovered/Resolved]
  - Abdominal pain [Recovered/Resolved]
  - Lactic acidosis [Recovered/Resolved]
  - Sensory level abnormal [Recovered/Resolved]
  - Hypoglycaemia [Recovered/Resolved]
  - Toxicity to various agents [Recovered/Resolved]
